FAERS Safety Report 9089879 (Version 2)
Quarter: 2013Q1

REPORT INFORMATION
  Report Type: Spontaneous
  Country: US (occurrence: US)
  Receive Date: 20130201
  Receipt Date: 20130306
  Transmission Date: 20140127
  Serious: No
  Sender: FDA-Public Use
  Company Number: US-PFIZER INC-2013042473

PATIENT
  Age: 93 Year
  Sex: Male
  Weight: 67.12 kg

DRUGS (3)
  1. CELEBREX [Suspect]
     Indication: NEURALGIA
     Dosage: UNK
     Dates: start: 2012
  2. CELEBREX [Suspect]
     Indication: BURNING SENSATION
  3. CELEBREX [Suspect]
     Indication: BALANCE DISORDER

REACTIONS (3)
  - Gait disturbance [Unknown]
  - Nausea [Unknown]
  - Dizziness [Unknown]
